FAERS Safety Report 16154510 (Version 2)
Quarter: 2019Q2

REPORT INFORMATION
  Report Type: Spontaneous
  Country: US (occurrence: US)
  Receive Date: 20190403
  Receipt Date: 20190418
  Transmission Date: 20190711
  Serious: Yes (Other)
  Sender: FDA-Public Use
  Company Number: US-MALLINCKRODT-T201902687

PATIENT

DRUGS (2)
  1. INOMAX [Suspect]
     Active Substance: NITRIC OXIDE
     Indication: HYPOXIA
     Dosage: 28 PPM, UNK
     Dates: start: 20010323
  2. INOMAX [Suspect]
     Active Substance: NITRIC OXIDE
     Dosage: 20 PPM, UNK
     Dates: start: 201903

REACTIONS (4)
  - Product use issue [Unknown]
  - Heart rate decreased [Recovered/Resolved]
  - Device malfunction [Unknown]
  - Oxygen saturation decreased [Recovered/Resolved]
